FAERS Safety Report 15157740 (Version 8)
Quarter: 2020Q4

REPORT INFORMATION
  Report Type: Spontaneous
  Country: US (occurrence: US)
  Receive Date: 20180718
  Receipt Date: 20201116
  Transmission Date: 20210113
  Serious: No
  Sender: FDA-Public Use
  Company Number: US-PFIZER INC-2018184771

PATIENT
  Age: 74 Year
  Sex: Male

DRUGS (10)
  1. LYRICA [Suspect]
     Active Substance: PREGABALIN
     Indication: MONONEUROPATHY
     Dosage: 50 MG, 2X/DAY
     Route: 048
     Dates: start: 20180424
  2. LYRICA [Suspect]
     Active Substance: PREGABALIN
     Dosage: 150 MG, 3X/DAY (TAKE 1 CAPSULE BY MOUTH 3 TIMES DAILY)
     Route: 048
     Dates: start: 20201106
  3. METHADONE [Concomitant]
     Active Substance: METHADONE HYDROCHLORIDE
     Dosage: 1 DF, 4X/DAY (QID FOR TWO WEEKS, DECREASE BY ONE PILL EVERY TWO WEEKS)
     Route: 048
     Dates: start: 20180424
  4. METFORMIN [Concomitant]
     Active Substance: METFORMIN HYDROCHLORIDE
     Dosage: 500 MG, 2X/DAY
     Route: 048
     Dates: start: 20170731
  5. HYDROCHLOROTHIAZIDE. [Concomitant]
     Active Substance: HYDROCHLOROTHIAZIDE
     Dosage: 25 MG, DAILY
     Route: 048
     Dates: start: 20171121
  6. LYRICA [Suspect]
     Active Substance: PREGABALIN
     Dosage: 150 MG, 3X/DAY
     Route: 048
     Dates: start: 20201105
  7. ATENOLOL. [Concomitant]
     Active Substance: ATENOLOL
     Dosage: 100 MG, DAILY
     Route: 048
     Dates: start: 20170524
  8. OMEGA Q PLUS [Concomitant]
     Dosage: UNK, DAILY
  9. MARINE D3 [Concomitant]
     Dosage: 1 DF, 2X/DAY
  10. TESTOSTERONE CYPIONATE. [Concomitant]
     Active Substance: TESTOSTERONE CYPIONATE
     Dosage: 400 MG (INJECT 2 MILLILITRES EVERY 4 WEEKS FOR 30 DAYS)
     Route: 030
     Dates: start: 20171016

REACTIONS (2)
  - Insomnia [Unknown]
  - Feeling abnormal [Unknown]

NARRATIVE: CASE EVENT DATE: 2018
